FAERS Safety Report 11653102 (Version 1)
Quarter: 2015Q4

REPORT INFORMATION
  Report Type: Report from Study
  Country: US (occurrence: US)
  Receive Date: 20151022
  Receipt Date: 20151022
  Transmission Date: 20160304
  Serious: No
  Sender: FDA-Public Use
  Company Number: US-CELGENEUS-USA-2015090936

PATIENT
  Age: 54 Year

DRUGS (3)
  1. REVLIMID [Suspect]
     Active Substance: LENALIDOMIDE
     Indication: PLASMA CELL MYELOMA
     Route: 048
     Dates: start: 200810
  2. REIMMUNIZED (6 SHOTS) [Concomitant]
     Indication: PRODUCT USED FOR UNKNOWN INDICATION
     Route: 050
  3. REVLIMID [Suspect]
     Active Substance: LENALIDOMIDE
     Route: 048

REACTIONS (12)
  - Insomnia [Unknown]
  - Depression [Unknown]
  - Plasma cell myeloma recurrent [Unknown]
  - Paraesthesia [Unknown]
  - Nonspecific reaction [Unknown]
  - Rhinorrhoea [Unknown]
  - Nasopharyngitis [Unknown]
  - Muscle spasms [Unknown]
  - Fracture nonunion [Unknown]
  - Grip strength decreased [Unknown]
  - Amnesia [Unknown]
  - Arthralgia [Unknown]
